FAERS Safety Report 4538301-9 (Version None)
Quarter: 2004Q4

REPORT INFORMATION
  Report Type: 
  Country: None (occurrence: None)
  Receive Date: 20041221
  Receipt Date: 20041214
  Transmission Date: 20050328
  Serious: Yes (Hospitalization)
  Sender: FDA-Public Use
  Company Number: 2004UW25392

PATIENT
  Age: 67 Year
  Sex: Female
  Weight: 46.266 kg

DRUGS (7)
  1. NEXIUM [Suspect]
     Indication: GASTROOESOPHAGEAL REFLUX DISEASE
     Dates: start: 20041101
  2. HUMALOG [Concomitant]
  3. ULTRALENTE ILETIN [Concomitant]
  4. INTAL [Concomitant]
  5. ALBUTEROL [Concomitant]
  6. LEVOTHYROXINE SODIUM [Concomitant]
  7. LOTENSIN [Concomitant]

REACTIONS (3)
  - FEELING ABNORMAL [None]
  - LOSS OF CONSCIOUSNESS [None]
  - NAUSEA [None]
